FAERS Safety Report 16926483 (Version 1)
Quarter: 2019Q4

REPORT INFORMATION
  Report Type: Report from Study
  Country: US (occurrence: US)
  Receive Date: 20191016
  Receipt Date: 20191016
  Transmission Date: 20200122
  Serious: Yes (Hospitalization)
  Sender: FDA-Public Use
  Company Number: NVSC2019US002614

PATIENT
  Sex: Female
  Weight: 81.87 kg

DRUGS (4)
  1. AMBRISENTAN [Concomitant]
     Active Substance: AMBRISENTAN
     Indication: PRODUCT USED FOR UNKNOWN INDICATION
     Route: 065
  2. TREPROSTINIL. [Suspect]
     Active Substance: TREPROSTINIL
     Indication: PULMONARY ARTERIAL HYPERTENSION
     Dosage: 28 OT (NG/KG/MIN), CONTINUOUS
     Route: 042
     Dates: start: 20190930
  3. REMODULIN [Suspect]
     Active Substance: TREPROSTINIL
     Indication: PRODUCT USED FOR UNKNOWN INDICATION
     Route: 065
  4. ELIQUIS [Concomitant]
     Active Substance: APIXABAN
     Indication: PRODUCT USED FOR UNKNOWN INDICATION
     Route: 065

REACTIONS (9)
  - Headache [Recovering/Resolving]
  - Diarrhoea [Unknown]
  - Muscle fatigue [Recovering/Resolving]
  - Pain [Unknown]
  - Decreased appetite [Unknown]
  - Pain in extremity [Recovering/Resolving]
  - Back pain [Unknown]
  - Nausea [Unknown]
  - Arthralgia [Recovering/Resolving]
